FAERS Safety Report 5937333-3 (Version None)
Quarter: 2008Q4

REPORT INFORMATION
  Report Type: 
  Country: None (occurrence: None)
  Receive Date: 20081031
  Receipt Date: 20081023
  Transmission Date: 20090506
  Serious: Yes (Other)
  Sender: FDA-Public Use
  Company Number: US-AVENTIS-200817201US

PATIENT
  Age: 88 Year
  Sex: Female

DRUGS (5)
  1. LASIX [Suspect]
     Dosage: DOSE: UNK
  2. POLYMYCIN B SULFATE [Suspect]
     Route: 042
  3. DIGOXIN [Concomitant]
     Dosage: DOSE: UNK
  4. VANCOMYCIN HYDROCHLORIDE [Concomitant]
     Dosage: DOSE: UNK
     Route: 042
  5. GENTAMICIN [Concomitant]
     Dosage: DOSE: UNK

REACTIONS (2)
  - DRUG INTERACTION [None]
  - RENAL FAILURE [None]
